FAERS Safety Report 6207016-3 (Version None)
Quarter: 2009Q2

REPORT INFORMATION
  Report Type: 
  Country: None (occurrence: None)
  Receive Date: 20090528
  Receipt Date: 20090209
  Transmission Date: 20091009
  Serious: Yes (Other)
  Sender: FDA-Public Use
  Company Number: US-PFIZER INC-2008161236

PATIENT
  Sex: Female
  Weight: 47.619 kg

DRUGS (4)
  1. DEPO-MEDROL [Suspect]
     Indication: JOINT SWELLING
     Dosage: UNK
     Dates: start: 20081119, end: 20081119
  2. XANAX [Concomitant]
     Dosage: 0.25 MG, UNK
  3. CEPHALEXIN [Concomitant]
     Dosage: UNK
  4. ASPIRIN [Concomitant]
     Dosage: UNK

REACTIONS (2)
  - EYELID OEDEMA [None]
  - URTICARIA [None]
